FAERS Safety Report 16762043 (Version 1)
Quarter: 2019Q3

REPORT INFORMATION
  Report Type: Spontaneous
  Country: US (occurrence: US)
  Receive Date: 20190830
  Receipt Date: 20190830
  Transmission Date: 20191005
  Serious: Yes (Death)
  Sender: FDA-Public Use
  Company Number: US-BIOGEN-2019BI00779935

PATIENT
  Age: 58 Year
  Sex: Male

DRUGS (1)
  1. TYSABRI [Suspect]
     Active Substance: NATALIZUMAB
     Indication: TUMEFACTIVE MULTIPLE SCLEROSIS
     Route: 065

REACTIONS (5)
  - Cognitive disorder [Unknown]
  - Gastrointestinal haemorrhage [Fatal]
  - Central nervous system lesion [Unknown]
  - Gait disturbance [Unknown]
  - Unintentional use for unapproved indication [Unknown]
